FAERS Safety Report 9707874 (Version 3)
Quarter: 2014Q1

REPORT INFORMATION
  Report Type: Spontaneous
  Country: CH (occurrence: CH)
  Receive Date: 20131125
  Receipt Date: 20140305
  Transmission Date: 20141002
  Serious: Yes (Other)
  Sender: FDA-Public Use
  Company Number: CH-PFIZER INC-2013261934

PATIENT
  Age: 65 Year
  Sex: Female

DRUGS (3)
  1. SUTENT [Suspect]
     Indication: METASTATIC RENAL CELL CARCINOMA
     Dosage: 50 MG, UNKNOWN FREQUENCY
     Dates: end: 201203
  2. SUTENT [Suspect]
     Dosage: 37.5 MG, UNK
     Dates: start: 201203, end: 201207
  3. SUTENT [Suspect]
     Dosage: 37.5 MG, 1X/DAY
     Dates: end: 201209

REACTIONS (12)
  - Palmar-plantar erythrodysaesthesia syndrome [Recovering/Resolving]
  - Thrombocytopenia [Recovering/Resolving]
  - Decreased appetite [Recovering/Resolving]
  - Nausea [Recovering/Resolving]
  - Weight decreased [Recovering/Resolving]
  - Hypothyroidism [Recovering/Resolving]
  - General physical health deterioration [Recovering/Resolving]
  - Aspartate aminotransferase increased [Recovering/Resolving]
  - Blood bilirubin increased [Recovering/Resolving]
  - Disease progression [Unknown]
  - Metastatic renal cell carcinoma [Unknown]
  - Hypertension [Recovered/Resolved]
